FAERS Safety Report 8564814-9 (Version None)
Quarter: 2012Q3

REPORT INFORMATION
  Report Type: 
  Country: None (occurrence: None)
  Receive Date: 20120803
  Receipt Date: 20120727
  Transmission Date: 20120928
  Serious: Yes (Hospitalization)
  Sender: FDA-Public Use
  Company Number: US-UCBSA-050504

PATIENT
  Age: 43 Year
  Sex: Male
  Weight: 80.2 kg

DRUGS (11)
  1. FOLIC ACID [Concomitant]
     Indication: BONE DISORDER
     Route: 048
     Dates: start: 20110312
  2. PREDNISONE [Concomitant]
     Indication: RHEUMATOID ARTHRITIS
     Route: 048
     Dates: start: 20100120
  3. CIMZIA [Suspect]
     Indication: RHEUMATOID ARTHRITIS
     Dosage: DOSE:200 MG
     Route: 058
     Dates: start: 20110711, end: 20120202
  4. FOLIC ACID [Concomitant]
     Indication: VITAMIN SUPPLEMENTATION
     Route: 048
     Dates: start: 20110312
  5. NAPROXEN [Concomitant]
     Indication: PAIN
     Route: 048
     Dates: start: 20110312
  6. CIMZIA [Suspect]
     Dosage: DOSE:400 MG
     Route: 058
     Dates: start: 20110531, end: 20110627
  7. FOLIC ACID [Concomitant]
     Indication: RHEUMATOID ARTHRITIS
     Route: 048
     Dates: start: 20110312
  8. CITRACAL [Concomitant]
     Indication: SUPPLEMENTATION THERAPY
     Route: 048
     Dates: start: 20100501
  9. CENTRUM [Concomitant]
     Indication: SUPPLEMENTATION THERAPY
     Route: 048
     Dates: start: 20100501
  10. CLARITIN [Concomitant]
     Indication: HYPERSENSITIVITY
     Route: 048
     Dates: start: 20110919
  11. PREDNISONE [Concomitant]
     Route: 048
     Dates: start: 20110502

REACTIONS (2)
  - INFECTION [None]
  - CELLULITIS [None]
